FAERS Safety Report 5489019-X (Version None)
Quarter: 2007Q4

REPORT INFORMATION
  Report Type: 
  Country: None (occurrence: None)
  Receive Date: 20071017
  Receipt Date: 20071008
  Transmission Date: 20080405
  Serious: Yes (Other)
  Sender: FDA-Public Use
  Company Number: US-ABBOTT-07P-163-0419876-00

PATIENT
  Age: 53 Year
  Sex: Male
  Weight: 70 kg

DRUGS (3)
  1. VALPROIC ACID [Suspect]
     Indication: DRUG USE FOR UNKNOWN INDICATION
     Route: 048
  2. LITHIUM CARBONATE [Suspect]
     Indication: DRUG USE FOR UNKNOWN INDICATION
     Route: 048
  3. TEMAZEPAM [Suspect]
     Indication: DRUG USE FOR UNKNOWN INDICATION
     Route: 048

REACTIONS (7)
  - AGITATION [None]
  - DYSARTHRIA [None]
  - FAECAL INCONTINENCE [None]
  - LOSS OF CONSCIOUSNESS [None]
  - SUICIDE ATTEMPT [None]
  - URINARY INCONTINENCE [None]
  - VOMITING [None]
